FAERS Safety Report 11185353 (Version 1)
Quarter: 2015Q2

REPORT INFORMATION
  Report Type: Spontaneous
  Country: JP (occurrence: JP)
  Receive Date: 20150612
  Receipt Date: 20150612
  Transmission Date: 20150821
  Serious: Yes (Hospitalization, Other)
  Sender: FDA-Public Use
  Company Number: JP-HORIZON-BUP-0008-2015

PATIENT
  Age: 10 Year
  Sex: Female
  Weight: 29.3 kg

DRUGS (7)
  1. ARGI-U [Concomitant]
     Indication: ORNITHINE TRANSCARBAMOYLASE DEFICIENCY
     Route: 048
     Dates: end: 20130616
  2. ARGI-U [Concomitant]
     Indication: ORNITHINE TRANSCARBAMOYLASE DEFICIENCY
     Route: 048
     Dates: start: 20130617
  3. LIVACT [Concomitant]
     Active Substance: AMINO ACIDS
     Indication: ORNITHINE TRANSCARBAMOYLASE DEFICIENCY
     Route: 048
     Dates: end: 20130416
  4. AMIYU [Concomitant]
     Indication: ORNITHINE TRANSCARBAMOYLASE DEFICIENCY
     Route: 048
  5. BUPHENYL [Suspect]
     Active Substance: SODIUM PHENYLBUTYRATE
     Indication: ORNITHINE TRANSCARBAMOYLASE DEFICIENCY
     Route: 048
     Dates: start: 20140223
  6. LIVACT [Concomitant]
     Active Substance: AMINO ACIDS
     Indication: ORNITHINE TRANSCARBAMOYLASE DEFICIENCY
     Route: 048
     Dates: start: 20130417
  7. LORATADINE. [Concomitant]
     Active Substance: LORATADINE
     Indication: ADVERSE EVENT
     Route: 048
     Dates: start: 20140324, end: 20140330

REACTIONS (2)
  - Hyperammonaemia [Recovered/Resolved]
  - Rhinorrhoea [Recovered/Resolved]

NARRATIVE: CASE EVENT DATE: 20140224
